FAERS Safety Report 6848772-0 (Version None)
Quarter: 2010Q3

REPORT INFORMATION
  Report Type: 
  Country: None (occurrence: None)
  Receive Date: 20100716
  Receipt Date: 20070912
  Transmission Date: 20110219
  Serious: No
  Sender: FDA-Public Use
  Company Number: US-PFIZER INC-2007076440

PATIENT
  Sex: Female
  Weight: 61.2 kg

DRUGS (5)
  1. CHANTIX [Suspect]
     Indication: SMOKING CESSATION THERAPY
     Route: 048
     Dates: start: 20070821, end: 20070910
  2. HYDROCODONE [Concomitant]
     Indication: PAIN
     Route: 048
  3. ESTRACE [Concomitant]
     Indication: MENOPAUSE
     Route: 048
  4. DYAZIDE [Concomitant]
     Route: 048
  5. MOBIC [Concomitant]
     Route: 048

REACTIONS (6)
  - DYSGEUSIA [None]
  - FEELING ABNORMAL [None]
  - FLATULENCE [None]
  - HEADACHE [None]
  - NAUSEA [None]
  - VISION BLURRED [None]
